FAERS Safety Report 7011829-8 (Version None)
Quarter: 2010Q3

REPORT INFORMATION
  Report Type: 
  Country: None (occurrence: None)
  Receive Date: 20100923
  Receipt Date: 20100209
  Transmission Date: 20110219
  Serious: No
  Sender: FDA-Public Use
  Company Number: US-WYE-H13731510

PATIENT
  Age: 78 Year
  Sex: Male

DRUGS (1)
  1. ADVIL PM [Suspect]
     Indication: PAIN IN EXTREMITY
     Dosage: ON LIQUIGEL ONCE
     Route: 048
     Dates: start: 20100208

REACTIONS (1)
  - CHOKING [None]
